FAERS Safety Report 21276049 (Version 1)
Quarter: 2022Q3

REPORT INFORMATION
  Report Type: Spontaneous
  Country: US (occurrence: US)
  Receive Date: 20220831
  Receipt Date: 20220831
  Transmission Date: 20221027
  Serious: No
  Sender: FDA-Public Use
  Company Number: US-ABBVIE-22K-163-4321372-00

PATIENT
  Age: 64 Year
  Sex: Female
  Weight: 88.530 kg

DRUGS (5)
  1. HUMIRA [Suspect]
     Active Substance: ADALIMUMAB
     Indication: Crohn^s disease
     Route: 058
     Dates: start: 201703
  2. HUMIRA [Suspect]
     Active Substance: ADALIMUMAB
     Route: 058
     Dates: start: 202107
  3. PFIZER BIONTECH COVID-19 [Concomitant]
     Indication: COVID-19 immunisation
     Dosage: PFIZER
     Route: 030
     Dates: start: 202101, end: 202101
  4. PFIZER BIONTECH COVID-19 [Concomitant]
     Dosage: PFIZER
     Route: 030
     Dates: start: 202102, end: 202102
  5. PFIZER BIONTECH COVID-19 [Concomitant]
     Dosage: PFIZER
     Route: 030
     Dates: start: 202108, end: 202108

REACTIONS (3)
  - Gastrointestinal ulcer [Recovering/Resolving]
  - Drug level decreased [Recovering/Resolving]
  - Anaemia [Recovering/Resolving]

NARRATIVE: CASE EVENT DATE: 20210201
